FAERS Safety Report 9924762 (Version 1)
Quarter: 2014Q1

REPORT INFORMATION
  Report Type: Spontaneous
  Country: US (occurrence: US)
  Receive Date: 20140226
  Receipt Date: 20140226
  Transmission Date: 20141002
  Serious: No
  Sender: FDA-Public Use
  Company Number: US-PFIZER INC-2014053248

PATIENT
  Sex: Female

DRUGS (7)
  1. HYDROCORTISONE [Suspect]
     Indication: ERYTHEMA
     Dosage: UNK
     Dates: start: 201402
  2. HYDROCORTISONE [Suspect]
     Indication: PRURITUS
  3. HYDROCORTISONE [Suspect]
     Indication: RASH
  4. PLAQUENIL [Concomitant]
     Indication: SJOGREN^S SYNDROME
     Dosage: 200 MG, DAILY
  5. SALAGEN [Concomitant]
     Indication: DRY MOUTH
     Dosage: 5 MG, DAILY
  6. TYLENOL [Concomitant]
     Indication: PAIN
     Dosage: AS NEEDED
  7. BENADRYL [Concomitant]
     Dosage: UNK

REACTIONS (3)
  - Lip swelling [Not Recovered/Not Resolved]
  - Lip pruritus [Not Recovered/Not Resolved]
  - Drug ineffective [Not Recovered/Not Resolved]
